FAERS Safety Report 20436326 (Version 1)
Quarter: 2022Q1

REPORT INFORMATION
  Report Type: Report from Study
  Country: MX (occurrence: MX)
  Receive Date: 20220207
  Receipt Date: 20220207
  Transmission Date: 20220423
  Serious: Yes (Other)
  Sender: FDA-Public Use
  Company Number: MX-NOVARTISPH-NVSC2022MX025464

PATIENT
  Age: 58 Year
  Sex: Male
  Weight: 133 kg

DRUGS (4)
  1. EXFORGE [Suspect]
     Active Substance: AMLODIPINE BESYLATE\VALSARTAN
     Indication: Hypertension
     Dosage: 1 DOSAGE FORM, QD (10/320MG) STARTED 8 MONTHS AGO
     Route: 048
  2. EXFORGE [Suspect]
     Active Substance: AMLODIPINE BESYLATE\VALSARTAN
     Dosage: ? OR ? , BID (10/320MG) STARTED 3 MONTHS AGO
     Route: 048
  3. LOSARTAN [Concomitant]
     Active Substance: LOSARTAN
     Indication: Product used for unknown indication
     Dosage: UNK
     Route: 065
  4. ALBUMIN HUMAN [Concomitant]
     Active Substance: ALBUMIN HUMAN
     Indication: Hypertension
     Dosage: 3 TO 5 ALBUMINS (50 ML TO 25%) Q2MO STARTED 3 YEARS AGO
     Route: 042

REACTIONS (18)
  - Cardiac failure [Unknown]
  - Pulmonary oedema [Recovering/Resolving]
  - Dyspnoea [Unknown]
  - Renal failure [Unknown]
  - Pneumonia [Not Recovered/Not Resolved]
  - Hypertensive crisis [Unknown]
  - Blood pressure increased [Recovering/Resolving]
  - Oxygen saturation decreased [Unknown]
  - COVID-19 [Not Recovered/Not Resolved]
  - Oedema [Not Recovered/Not Resolved]
  - Feeling abnormal [Recovering/Resolving]
  - Weight increased [Unknown]
  - Dehydration [Unknown]
  - Fluid retention [Unknown]
  - Heart rate increased [Unknown]
  - Vaccination complication [Recovering/Resolving]
  - Wrong technique in product usage process [Unknown]
  - Off label use [Unknown]

NARRATIVE: CASE EVENT DATE: 20210125
